FAERS Safety Report 7341725-8 (Version None)
Quarter: 2011Q1

REPORT INFORMATION
  Report Type: 
  Country: None (occurrence: None)
  Receive Date: 20110309
  Receipt Date: 20110304
  Transmission Date: 20110831
  Serious: Yes (Life-Threatening, Hospitalization)
  Sender: FDA-Public Use
  Company Number: JP-BAYER-200911459BYL

PATIENT
  Sex: Male
  Weight: 57.8 kg

DRUGS (1)
  1. NEXAVAR [Suspect]
     Indication: RENAL CELL CARCINOMA
     Dosage: 800 MG (DAILY DOSE), , ORAL
     Route: 048
     Dates: start: 20090421, end: 20090507

REACTIONS (3)
  - ABDOMINAL PAIN LOWER [None]
  - MELAENA [None]
  - PLATELET COUNT DECREASED [None]
